FAERS Safety Report 7554687-5 (Version None)
Quarter: 2011Q2

REPORT INFORMATION
  Report Type: 
  Country: None (occurrence: None)
  Receive Date: 20110617
  Receipt Date: 20110607
  Transmission Date: 20111010
  Serious: Yes (Hospitalization, Other)
  Sender: FDA-Public Use
  Company Number: US-JNJFOC-20100305443

PATIENT
  Sex: Male
  Weight: 94 kg

DRUGS (9)
  1. SULFAMETHOXAZOLE AND TRIMETHOPRIM [Concomitant]
     Indication: LIVER DISORDER
     Route: 048
  2. MULTI-VITAMINS [Concomitant]
     Indication: NUTRITIONAL SUPPORT
     Route: 048
     Dates: start: 20080201
  3. USTEKINUMAB [Suspect]
     Indication: PSORIASIS
     Route: 058
     Dates: start: 20090730
  4. PREDNISONE [Concomitant]
     Indication: LIVER DISORDER
     Route: 048
     Dates: start: 20100201
  5. FUROSEMIDE [Concomitant]
     Indication: FLUID RETENTION
     Route: 048
     Dates: start: 20100201
  6. USTEKINUMAB [Suspect]
     Route: 058
     Dates: start: 20060413
  7. OMEPRAZOLE [Concomitant]
     Indication: GASTROINTESTINAL ULCER
     Route: 048
     Dates: start: 20100201
  8. EXCEDRIN (MIGRAINE) [Concomitant]
     Indication: ARTHRITIS
     Route: 048
     Dates: start: 20070101
  9. URSODIOL [Concomitant]
     Indication: LIVER DISORDER
     Route: 048
     Dates: start: 20100201

REACTIONS (2)
  - AUTOIMMUNE HEPATITIS [None]
  - ASCITES [None]
